FAERS Safety Report 5306643-5 (Version None)
Quarter: 2007Q2

REPORT INFORMATION
  Report Type: 
  Country: None (occurrence: None)
  Receive Date: 20070424
  Receipt Date: 20070413
  Transmission Date: 20071010
  Serious: Yes (Hospitalization)
  Sender: FDA-Public Use
  Company Number: DE-PFIZER INC-2007029219

PATIENT
  Sex: Female

DRUGS (4)
  1. EPIRUBICIN HYDROCHLORIDE [Suspect]
     Indication: BREAST CANCER
     Dosage: TEXT:181 MILLIGRAM 1/2 WEEK
     Route: 042
     Dates: start: 20060712, end: 20070118
  2. CYCLOPHOSPHAMIDE [Suspect]
     Indication: BREAST CANCER
     Dosage: TEXT:966 MILLIGRAM 1/2 WEEK
     Route: 042
     Dates: start: 20060712, end: 20070118
  3. PACLITAXEL [Suspect]
     Indication: BREAST CANCER
     Dosage: TEXT:10 GRAM 1/1 WEEK
     Route: 042
     Dates: start: 20060201, end: 20070315
  4. CAPECITABINE [Suspect]
     Indication: BREAST CANCER
     Dosage: TEXT:3000 MILLIGRAM 7/3 WEEK
     Route: 048

REACTIONS (2)
  - PNEUMONIA [None]
  - PYREXIA [None]
